FAERS Safety Report 13936172 (Version 1)
Quarter: 2017Q3

REPORT INFORMATION
  Report Type: Spontaneous
  Country: DE (occurrence: DE)
  Receive Date: 20170905
  Receipt Date: 20170905
  Transmission Date: 20171127
  Serious: Yes (Other)
  Sender: FDA-Public Use
  Company Number: DE-UCBSA-2017034278

PATIENT
  Sex: Female

DRUGS (2)
  1. NEUPRO [Suspect]
     Active Substance: ROTIGOTINE
     Indication: POLYNEUROPATHY
     Dosage: 3 MG, UNK
     Route: 062
  2. NEUPRO [Suspect]
     Active Substance: ROTIGOTINE
     Indication: OFF LABEL USE

REACTIONS (2)
  - Malignant melanoma [Unknown]
  - Off label use [Unknown]
